FAERS Safety Report 8868759 (Version 1)
Quarter: 2012Q4

REPORT INFORMATION
  Report Type: 
  Country: US (occurrence: US)
  Receive Date: 20121026
  Receipt Date: 20121026
  Transmission Date: 20130627
  Serious: No
  Sender: FDA-Public Use
  Company Number: US-AMGEN-USASP2012047633

PATIENT
  Age: 67 Year
  Sex: Female
  Weight: 83.9 kg

DRUGS (8)
  1. ENBREL [Suspect]
     Indication: PRODUCT USED FOR UNKNOWN INDICATION
     Dosage: 50 mg, qwk
     Route: 058
  2. LASIX                              /00032601/ [Concomitant]
     Dosage: 20 mg, UNK
  3. PREDNISONE [Concomitant]
     Dosage: 10 mg, UNK
  4. BACTRIM DS [Concomitant]
     Dosage: 800-160, UNK
  5. KEFLEX                             /00145501/ [Concomitant]
     Dosage: 250 mg, UNK
  6. DIPHENHIST [Concomitant]
     Dosage: 25 mg, UNK
  7. ADVIL                              /00044201/ [Concomitant]
     Dosage: 200 mg, UNK
  8. NITROGLYCERIN [Concomitant]
     Dosage: 6.5 mg, UNK

REACTIONS (1)
  - Urinary tract infection [Unknown]
